FAERS Safety Report 23057422 (Version 3)
Quarter: 2023Q4

REPORT INFORMATION
  Report Type: Spontaneous
  Country: JP (occurrence: JP)
  Receive Date: 20231012
  Receipt Date: 20231109
  Transmission Date: 20240110
  Serious: Yes (Other)
  Sender: FDA-Public Use
  Company Number: JP-UCBSA-2023049177

PATIENT
  Age: 31 Year
  Sex: Female
  Weight: 45.1 kg

DRUGS (10)
  1. CIMZIA [Suspect]
     Active Substance: CERTOLIZUMAB PEGOL
     Indication: Rheumatoid arthritis
     Dosage: 400 MILLIGRAM
     Route: 058
     Dates: start: 20231005, end: 20231005
  2. LOXOPROFEN SODIUM [Concomitant]
     Active Substance: LOXOPROFEN SODIUM
     Indication: Product used for unknown indication
     Dosage: UNK
     Route: 048
     Dates: start: 20230912
  3. REBAMIPIDE [Concomitant]
     Active Substance: REBAMIPIDE
     Indication: Product used for unknown indication
     Route: 048
     Dates: start: 20230912
  4. RIPASUDIL HYDROCHLORIDE DIHYDRATE [Concomitant]
     Active Substance: RIPASUDIL HYDROCHLORIDE DIHYDRATE
     Indication: Product used for unknown indication
     Route: 047
     Dates: start: 20180320
  5. ALPHAGAN P [Concomitant]
     Active Substance: BRIMONIDINE TARTRATE
     Indication: Product used for unknown indication
     Route: 047
     Dates: start: 20180721
  6. BRINZOLAMIDE\TIMOLOL MALEATE [Concomitant]
     Active Substance: BRINZOLAMIDE\TIMOLOL MALEATE
     Indication: Product used for unknown indication
     Route: 047
     Dates: start: 20150528
  7. OMIDENEPAG ISOPROPYL [Concomitant]
     Active Substance: OMIDENEPAG ISOPROPYL
     Indication: Product used for unknown indication
     Route: 047
     Dates: start: 20190215
  8. MOIZERTO [Concomitant]
     Indication: Product used for unknown indication
     Route: 062
     Dates: start: 20220327
  9. ANTEBATE:OINTMENT [Concomitant]
     Indication: Product used for unknown indication
     Route: 062
     Dates: start: 20211214
  10. GLYCOSAMINOGLYCANS [Concomitant]
     Active Substance: GLYCOSAMINOGLYCANS
     Indication: Product used for unknown indication
     Route: 062
     Dates: start: 20211214

REACTIONS (1)
  - Anaphylactic reaction [Recovered/Resolved]

NARRATIVE: CASE EVENT DATE: 20231005
